FAERS Safety Report 21762898 (Version 1)
Quarter: 2022Q4

REPORT INFORMATION
  Report Type: Spontaneous
  Country: US (occurrence: None)
  Receive Date: 20221221
  Receipt Date: 20221221
  Transmission Date: 20230113
  Serious: Yes (Other)
  Sender: FDA-Public Use
  Company Number: 2022A407036

PATIENT
  Sex: Female

DRUGS (1)
  1. SEROQUEL [Suspect]
     Active Substance: QUETIAPINE FUMARATE
     Indication: Bipolar disorder
     Dosage: 800 MG TO 1000 MG FREQUENCY UNKNOWN UNKNOWN
     Route: 048

REACTIONS (2)
  - Exposure during pregnancy [Unknown]
  - Abortion [Not Recovered/Not Resolved]
